FAERS Safety Report 18337132 (Version 1)
Quarter: 2020Q4

REPORT INFORMATION
  Report Type: Report from Study
  Country: None (occurrence: US)
  Receive Date: 20201002
  Receipt Date: 20201002
  Transmission Date: 20210113
  Serious: Yes (Other)
  Sender: FDA-Public Use
  Company Number: US-ABBVIE-20K-163-3585746-00

PATIENT
  Sex: Male

DRUGS (2)
  1. RINVOQ [Suspect]
     Active Substance: UPADACITINIB
     Dosage: REDUCED DOSAGE FROM 7 DAYS TO 6 DAYS
     Route: 048
  2. RINVOQ [Suspect]
     Active Substance: UPADACITINIB
     Indication: RHEUMATOID ARTHRITIS
     Dosage: REDUCED DOSAGE FROM 7 DAYS TO 6 DAYS
     Route: 048

REACTIONS (6)
  - Wrist surgery [Unknown]
  - Nodule [Unknown]
  - Joint instability [Unknown]
  - Joint swelling [Unknown]
  - Arthritis [Unknown]
  - Peripheral swelling [Unknown]
